FAERS Safety Report 22074964 (Version 2)
Quarter: 2023Q2

REPORT INFORMATION
  Report Type: Spontaneous
  Country: US (occurrence: US)
  Receive Date: 20230308
  Receipt Date: 20230612
  Transmission Date: 20230721
  Serious: Yes (Hospitalization)
  Sender: FDA-Public Use
  Company Number: US-SA-SAC20230307000837

PATIENT
  Sex: Male

DRUGS (1)
  1. DUPIXENT [Suspect]
     Active Substance: DUPILUMAB
     Indication: Dermatitis atopic
     Dosage: DOSE: 300 MG FREQUENCY: OTHER
     Route: 058

REACTIONS (5)
  - Hospitalisation [Unknown]
  - Rash [Unknown]
  - Eczema [Unknown]
  - Skin exfoliation [Unknown]
  - Product dose omission issue [Unknown]
